FAERS Safety Report 6429879-9 (Version None)
Quarter: 2009Q4

REPORT INFORMATION
  Report Type: 
  Country: None (occurrence: None)
  Receive Date: 20091106
  Receipt Date: 20091027
  Transmission Date: 20100525
  Serious: Yes (Other)
  Sender: FDA-Public Use
  Company Number: US-CELGENEUS-163-20785-09102347

PATIENT
  Sex: Male

DRUGS (11)
  1. THALIDOMIDE [Suspect]
     Indication: MULTIPLE MYELOMA
     Route: 048
     Dates: start: 20030514
  2. THALIDOMIDE [Suspect]
     Route: 048
     Dates: start: 20050809, end: 20060701
  3. THALIDOMIDE [Suspect]
     Route: 048
     Dates: start: 20030901
  4. ALKERAN [Concomitant]
     Indication: DRUG USE FOR UNKNOWN INDICATION
     Route: 065
     Dates: start: 20030508
  5. ALKERAN [Concomitant]
     Route: 065
     Dates: start: 20031124, end: 20031203
  6. ALKERAN [Concomitant]
     Route: 065
     Dates: start: 20050118, end: 20050302
  7. PREDNISONE TAB [Concomitant]
     Indication: DRUG USE FOR UNKNOWN INDICATION
     Route: 065
     Dates: start: 20030508
  8. PREDNISONE TAB [Concomitant]
     Route: 065
     Dates: start: 20031124, end: 20031203
  9. PREDNISONE TAB [Concomitant]
     Route: 065
     Dates: end: 20040101
  10. PREDNISONE TAB [Concomitant]
     Route: 065
     Dates: end: 20050730
  11. PREDNISONE TAB [Concomitant]
     Route: 065
     Dates: start: 20050809, end: 20060701

REACTIONS (4)
  - BILE DUCT CANCER [None]
  - JAUNDICE [None]
  - LOSS OF CONSCIOUSNESS [None]
  - PNEUMONIA [None]
